FAERS Safety Report 14779438 (Version 1)
Quarter: 2018Q2

REPORT INFORMATION
  Report Type: Spontaneous
  Country: DE (occurrence: DE)
  Receive Date: 20180419
  Receipt Date: 20180419
  Transmission Date: 20180711
  Serious: Yes (Life-Threatening, Hospitalization, Other)
  Sender: FDA-Public Use
  Company Number: DE-BAYER-2018-074641

PATIENT
  Age: 44 Year
  Sex: Male
  Weight: 100 kg

DRUGS (1)
  1. ULTRAGRAF [Suspect]
     Active Substance: IOPROMIDE
     Indication: COMPUTERISED TOMOGRAM
     Dosage: 80 ML, UNK
     Route: 042
     Dates: start: 20180412, end: 20180412

REACTIONS (5)
  - Angioedema [Unknown]
  - Contrast media reaction [Unknown]
  - Brain oedema [Unknown]
  - Obstructive airways disorder [Unknown]
  - Neurological symptom [Unknown]

NARRATIVE: CASE EVENT DATE: 20180412
